FAERS Safety Report 14289516 (Version 1)
Quarter: 2017Q4

REPORT INFORMATION
  Report Type: Spontaneous
  Country: US (occurrence: US)
  Receive Date: 20171214
  Receipt Date: 20171214
  Transmission Date: 20180321
  Serious: Yes (Hospitalization)
  Sender: FDA-Public Use
  Company Number: US-ACTELION-A-NJ2017-164149

PATIENT
  Age: 2 Month
  Sex: Female

DRUGS (4)
  1. RANITIDINE. [Concomitant]
     Active Substance: RANITIDINE
     Dosage: 75MG/5ML, UNK
     Dates: start: 20171109
  2. DIGOXIN. [Concomitant]
     Active Substance: DIGOXIN
     Dosage: 50 MCG/ML, UNK
     Dates: start: 20171130
  3. CEPHALEXIN. [Concomitant]
     Active Substance: CEPHALEXIN
     Dosage: 125 MG/5 ML, UNK
     Dates: start: 20171203
  4. TRACLEER [Suspect]
     Active Substance: BOSENTAN
     Indication: PULMONARY HYPERTENSION
     Dosage: 15.625 MG, QD
     Route: 048
     Dates: start: 20171110

REACTIONS (2)
  - Pyrexia [Recovered/Resolved]
  - Urinary tract infection [Recovered/Resolved]

NARRATIVE: CASE EVENT DATE: 20171202
